FAERS Safety Report 12842642 (Version 2)
Quarter: 2016Q4

REPORT INFORMATION
  Report Type: Report from Study
  Country: CA (occurrence: CA)
  Receive Date: 20161013
  Receipt Date: 20161202
  Transmission Date: 20170207
  Serious: Yes (Other)
  Sender: FDA-Public Use
  Company Number: PHHY2015CA150499

PATIENT
  Age: 37 Year
  Sex: Female

DRUGS (1)
  1. GILENYA [Suspect]
     Active Substance: FINGOLIMOD HYDROCHLORIDE
     Indication: PRODUCT USED FOR UNKNOWN INDICATION
     Dosage: UNK
     Route: 048
     Dates: start: 20151113

REACTIONS (24)
  - Multiple sclerosis [Unknown]
  - Skin discolouration [Unknown]
  - Diarrhoea [Unknown]
  - Heart rate decreased [Unknown]
  - White blood cell count decreased [Unknown]
  - Malaise [Unknown]
  - Vomiting [Unknown]
  - Lymphocyte count decreased [Unknown]
  - Cough [Unknown]
  - Productive cough [Unknown]
  - Vision blurred [Unknown]
  - Flushing [Unknown]
  - Oropharyngeal pain [Unknown]
  - Infection [Unknown]
  - Nasopharyngitis [Recovered/Resolved]
  - Fatigue [Unknown]
  - Vein collapse [Unknown]
  - Dyspnoea [Unknown]
  - Pain in extremity [Unknown]
  - Blood iron decreased [Unknown]
  - Stress [Unknown]
  - Anxiety [Unknown]
  - Nasal congestion [Unknown]
  - Headache [Unknown]

NARRATIVE: CASE EVENT DATE: 20151113
